FAERS Safety Report 4850579-0 (Version None)
Quarter: 2005Q4

REPORT INFORMATION
  Report Type: 
  Country: None (occurrence: None)
  Receive Date: 20051212
  Receipt Date: 20051128
  Transmission Date: 20060501
  Serious: Yes (Hospitalization, Other)
  Sender: FDA-Public Use
  Company Number: DE-JNJFOC-20051106076

PATIENT
  Age: 31 Year
  Sex: Male

DRUGS (2)
  1. INFLIXIMAB [Suspect]
     Route: 042
  2. INFLIXIMAB [Suspect]
     Indication: ANKYLOSING SPONDYLITIS
     Dosage: 12 MONTHS
     Route: 042

REACTIONS (6)
  - CARDIOMEGALY [None]
  - FALL [None]
  - NAUSEA [None]
  - SKIN LACERATION [None]
  - SYNCOPE [None]
  - VERTIGO [None]
